FAERS Safety Report 12273194 (Version 1)
Quarter: 2016Q2

REPORT INFORMATION
  Report Type: Spontaneous
  Country: GB (occurrence: GB)
  Receive Date: 20160415
  Receipt Date: 20160415
  Transmission Date: 20160815
  Serious: Yes (Other)
  Sender: FDA-Public Use
  Company Number: GB-JNJFOC-20160413654

PATIENT
  Age: 39 Year
  Sex: Male

DRUGS (3)
  1. DALTEPARIN [Concomitant]
     Active Substance: DALTEPARIN
     Indication: DEEP VEIN THROMBOSIS
     Route: 065
     Dates: start: 20160322, end: 20160322
  2. XARELTO [Suspect]
     Active Substance: RIVAROXABAN
     Indication: EMBOLISM VENOUS
     Route: 048
     Dates: start: 20160324, end: 20160327
  3. XARELTO [Suspect]
     Active Substance: RIVAROXABAN
     Indication: DEEP VEIN THROMBOSIS
     Route: 048
     Dates: start: 20160324, end: 20160327

REACTIONS (3)
  - Rash maculo-papular [Recovering/Resolving]
  - Pallor [Recovering/Resolving]
  - Generalised erythema [Recovering/Resolving]

NARRATIVE: CASE EVENT DATE: 20160327
